FAERS Safety Report 8490584-9 (Version None)
Quarter: 2012Q3

REPORT INFORMATION
  Report Type: 
  Country: None (occurrence: None)
  Receive Date: 20120705
  Receipt Date: 20120704
  Transmission Date: 20120928
  Serious: Yes (Hospitalization)
  Sender: FDA-Public Use
  Company Number: DK-ABBOTT-12P-044-0918192-00

PATIENT
  Sex: Male
  Weight: 76 kg

DRUGS (4)
  1. HUMIRA [Suspect]
     Indication: RHEUMATOID ARTHRITIS
     Dates: start: 20110412, end: 20111201
  2. METHOTREXATE [Concomitant]
     Route: 048
     Dates: start: 20110401
  3. METHOTREXATE [Concomitant]
     Indication: PRODUCT USED FOR UNKNOWN INDICATION
     Route: 058
     Dates: start: 20100914, end: 20110412
  4. FOLIC ACID [Concomitant]
     Indication: PRODUCT USED FOR UNKNOWN INDICATION

REACTIONS (8)
  - RASH PUSTULAR [None]
  - MALAISE [None]
  - DYSPNOEA [None]
  - DERMATITIS PSORIASIFORM [None]
  - COUGH [None]
  - PYREXIA [None]
  - EYE SWELLING [None]
  - NIGHT SWEATS [None]
